FAERS Safety Report 8822492 (Version 1)
Quarter: 2012Q4

REPORT INFORMATION
  Report Type: 
  Country: US (occurrence: US)
  Receive Date: 20121003
  Receipt Date: 20121003
  Transmission Date: 20130627
  Serious: Yes (Hospitalization)
  Sender: FDA-Public Use
  Company Number: US-ELI_LILLY_AND_COMPANY-US201209005881

PATIENT
  Sex: Female
  Weight: 56.69 kg

DRUGS (2)
  1. PROZAC [Suspect]
  2. EFFEXOR [Concomitant]

REACTIONS (2)
  - Narcolepsy [Unknown]
  - Depression [Unknown]
